FAERS Safety Report 6602446-X (Version None)
Quarter: 2010Q1

REPORT INFORMATION
  Report Type: 
  Country: None (occurrence: None)
  Receive Date: 20100225
  Receipt Date: 20100215
  Transmission Date: 20100710
  Serious: Yes (Hospitalization, Other)
  Sender: FDA-Public Use
  Company Number: US-ABBOTT-09P-163-0615499-00

PATIENT
  Sex: Female
  Weight: 63.56 kg

DRUGS (2)
  1. HUMIRA [Suspect]
     Indication: CROHN'S DISEASE
     Route: 058
     Dates: start: 20091001, end: 20091126
  2. TPN ELECTROLYTES IN PLASTIC CONTAINER [Concomitant]
     Indication: CROHN'S DISEASE
     Dosage: INFUSES FOR 13 HOURS EVERY BEDTIME
     Route: 042
     Dates: start: 19870101

REACTIONS (12)
  - CHILLS [None]
  - DEVICE RELATED INFECTION [None]
  - ERYTHEMA [None]
  - GINGIVAL PAIN [None]
  - PAIN IN EXTREMITY [None]
  - PNEUMONIA [None]
  - PRURITUS [None]
  - PYREXIA [None]
  - RASH MACULO-PAPULAR [None]
  - SEPSIS [None]
  - TOOTH INFECTION [None]
  - VASCULITIS [None]
